FAERS Safety Report 4711477-6 (Version None)
Quarter: 2005Q3

REPORT INFORMATION
  Report Type: 
  Country: None (occurrence: None)
  Receive Date: 20050711
  Receipt Date: 20050624
  Transmission Date: 20060218
  Serious: No
  Sender: FDA-Public Use
  Company Number: 0205021

PATIENT
  Age: 79 Year
  Sex: Female

DRUGS (2)
  1. DEPODUR [Suspect]
     Indication: POSTOPERATIVE ANALGESIA
     Dosage: 14 MG (ONCE), EPIDURAL
     Route: 008
     Dates: start: 20050613, end: 20050613
  2. BLOOD PRESSURE MEDICATIONS (ANTIHYPERTENSIVES) [Concomitant]

REACTIONS (4)
  - DEPRESSED LEVEL OF CONSCIOUSNESS [None]
  - SEDATION [None]
  - SOMNOLENCE [None]
  - UNRESPONSIVE TO VERBAL STIMULI [None]
